FAERS Safety Report 14541593 (Version 1)
Quarter: 2018Q1

REPORT INFORMATION
  Report Type: Report from Study
  Country: US (occurrence: US)
  Receive Date: 20180216
  Receipt Date: 20180216
  Transmission Date: 20180509
  Serious: Yes (Other)
  Sender: FDA-Public Use
  Company Number: US-GILEAD-2018-0320974

PATIENT
  Age: 78 Year
  Sex: Female

DRUGS (3)
  1. HUMIRA [Suspect]
     Active Substance: ADALIMUMAB
     Indication: CROHN^S DISEASE
     Dosage: 40 MG, Q2WK
     Route: 058
     Dates: start: 2017
  2. ISOSORBIDE MONONITRATE. [Suspect]
     Active Substance: ISOSORBIDE MONONITRATE
     Indication: ELECTROCARDIOGRAM ABNORMAL
     Dosage: UNK
     Route: 065
     Dates: start: 20171026, end: 201710
  3. RANOLAZINE. [Suspect]
     Active Substance: RANOLAZINE
     Indication: ELECTROCARDIOGRAM ABNORMAL
     Dosage: 500 MG, 1 IN 2D
     Route: 065
     Dates: start: 20171201, end: 201712

REACTIONS (10)
  - Hypersensitivity [Unknown]
  - Chest discomfort [Recovered/Resolved]
  - Headache [Recovered/Resolved]
  - Crohn^s disease [Not Recovered/Not Resolved]
  - Urinary retention [Recovered/Resolved]
  - Electrocardiogram abnormal [Unknown]
  - Oliguria [Recovered/Resolved]
  - Off label use [Recovered/Resolved]
  - Weight increased [Recovered/Resolved]
  - Vomiting [Unknown]

NARRATIVE: CASE EVENT DATE: 2017
